FAERS Safety Report 17541198 (Version 1)
Quarter: 2020Q1

REPORT INFORMATION
  Report Type: Spontaneous
  Country: US (occurrence: US)
  Receive Date: 20200313
  Receipt Date: 20200313
  Transmission Date: 20200409
  Serious: Yes (Other)
  Sender: FDA-Public Use
  Company Number: US-SA-2020SA064095

PATIENT
  Age: 75 Year
  Sex: Female

DRUGS (2)
  1. DUPIXENT [Suspect]
     Active Substance: DUPILUMAB
     Dosage: UNK
     Dates: start: 202002
  2. DUPIXENT [Suspect]
     Active Substance: DUPILUMAB
     Indication: ECZEMA
     Dosage: 600 MG, 1X
     Dates: start: 20200208, end: 20200208

REACTIONS (4)
  - Condition aggravated [Not Recovered/Not Resolved]
  - Non-cardiac chest pain [Unknown]
  - Neovascular age-related macular degeneration [Not Recovered/Not Resolved]
  - Eye discharge [Not Recovered/Not Resolved]
